FAERS Safety Report 8765237 (Version 1)
Quarter: 2012Q4

REPORT INFORMATION
  Report Type: 
  Country: US (occurrence: US)
  Receive Date: 20120902
  Receipt Date: 20120902
  Transmission Date: 20130627
  Serious: No
  Sender: FDA-Public Use
  Company Number: US-PFIZER INC-2012215305

PATIENT
  Age: 54 Year
  Sex: Male
  Weight: 121 kg

DRUGS (3)
  1. CHANTIX [Suspect]
     Indication: SMOKING CESSATION THERAPY
     Dosage: 0.5 mg, daily
     Route: 048
     Dates: start: 201208, end: 201208
  2. CHANTIX [Suspect]
     Dosage: UNK
     Route: 048
     Dates: start: 201208, end: 20120815
  3. NEBIVOLOL [Concomitant]
     Indication: BLOOD PRESSURE INCREASED
     Dosage: 60 mg, daily

REACTIONS (3)
  - Agitation [Not Recovered/Not Resolved]
  - Restlessness [Unknown]
  - Blood pressure abnormal [Unknown]
